FAERS Safety Report 25627239 (Version 1)
Quarter: 2025Q3

REPORT INFORMATION
  Report Type: Spontaneous
  Country: EU (occurrence: EU)
  Receive Date: 20250731
  Receipt Date: 20250731
  Transmission Date: 20251020
  Serious: Yes (Life-Threatening, Hospitalization)
  Sender: PFIZER
  Company Number: None

PATIENT
  Age: 76 Year
  Sex: Female
  Weight: 62 kg

DRUGS (3)
  1. CARBOPLATIN [Suspect]
     Active Substance: CARBOPLATIN
     Indication: Leiomyosarcoma metastatic
     Route: 042
     Dates: start: 20250617, end: 20250617
  2. PACLITAXEL [Suspect]
     Active Substance: PACLITAXEL
     Indication: Leiomyosarcoma metastatic
     Route: 042
     Dates: start: 20250617, end: 20250617
  3. JEMPERLI [Suspect]
     Active Substance: DOSTARLIMAB-GXLY
     Indication: Leiomyosarcoma metastatic
     Route: 042
     Dates: start: 20250617, end: 20250617

REACTIONS (2)
  - Acute polyneuropathy [Not Recovered/Not Resolved]
  - Off label use [Unknown]

NARRATIVE: CASE EVENT DATE: 20250619
